FAERS Safety Report 8665267 (Version 2)
Quarter: 2013Q4

REPORT INFORMATION
  Report Type: Report from Study
  Country: US (occurrence: US)
  Receive Date: 20120716
  Receipt Date: 20131106
  Transmission Date: 20140711
  Serious: Yes (Hospitalization, Disabling)
  Sender: FDA-Public Use
  Company Number: US-009507513-1207USA002328

PATIENT
  Age: 57 Year
  Sex: Female
  Weight: 96.15 kg

DRUGS (3)
  1. VICTRELIS [Suspect]
     Indication: HEPATITIS C
     Dosage: 200 MG, TID
     Dates: end: 20120429
  2. REBETOL [Suspect]
     Indication: HEPATITIS C
     Dosage: 1000 MG, QD
     Dates: end: 20120429
  3. PEGASYS [Concomitant]
     Dosage: 180 MICROGRAM, QW
     Route: 058
     Dates: end: 20120429

REACTIONS (4)
  - Asthenia [Unknown]
  - Muscle spasms [Unknown]
  - Anaemia [Unknown]
  - Dehydration [Unknown]
